FAERS Safety Report 18403202 (Version 1)
Quarter: 2020Q4

REPORT INFORMATION
  Report Type: Spontaneous
  Country: NL (occurrence: NL)
  Receive Date: 20201020
  Receipt Date: 20201020
  Transmission Date: 20210114
  Serious: Yes (Hospitalization)
  Sender: FDA-Public Use
  Company Number: NL-TEVA-2020-NL-1839194

PATIENT
  Age: 53 Year
  Sex: Female
  Weight: 117 kg

DRUGS (10)
  1. INSULINE GLARGINE 100E/ML INJVLST / ABASAGLAR INJVLST 100E/ML PEN 3ML [Concomitant]
     Dosage: 20 E ONCE A DAY, UNIT DOSE: 20 IU,
  2. ESCITALOPRAM [Suspect]
     Active Substance: ESCITALOPRAM OXALATE
     Indication: BIPOLAR DISORDER
     Dosage: 20 MILLIGRAM DAILY;  THERAPY END DATE : ASKED BUT UNKNOWN
     Route: 065
     Dates: start: 20200909
  3. BIPERIDEEN TABLET 2MG / AKINETON TABLET 2MG [Concomitant]
     Dosage: 2 MG (MILLIGRAM),
  4. PROMETHAZINE TABLET OMHULD 25MG / BRAND NAME NOT SPECIFIED [Concomitant]
     Dosage: 25 MG (MILLIGRAM ),
  5. CLOZAPINE TABLET 100MG / BRAND NAME NOT SPECIFIED [Concomitant]
     Dosage: 100 MG (MILLIGRAM ),
  6. LORAZEPAM TABLET 1MG / BRAND NAME NOT SPECIFIED [Concomitant]
     Dosage: 1 MG (MILLIGRAM)
  7. MACROGOL/ZOUTEN PDR V DRANK (MOVIC/MOLAX/LAXT/GEN) / MOVICOLON POEDER [Concomitant]
     Dosage: POWDER FOR BEVERAGE, UNIT DOSE: 1 DOSAGE FORMS,
  8. RIVAROXABAN TABLET 15MG / XARELTO TABLET FILMOMHULD 15MG [Concomitant]
     Dosage: 15 MG (MILLIGRAM)
  9. CETOMACROGOL CREME / BRAND NAME NOT SPECIFIED [Concomitant]
     Dosage: UNIT DOSE: 1 DOSAGE FORMS,
  10. HALOPERIDOL TABLET 10MG / HALDOL TABLET 10MG [Concomitant]
     Dosage: 10 MG (MILLIGRAM)

REACTIONS (2)
  - Cardiac arrest [Not Recovered/Not Resolved]
  - Bradycardia [Not Recovered/Not Resolved]

NARRATIVE: CASE EVENT DATE: 20200911
